FAERS Safety Report 9201603 (Version 1)
Quarter: 2013Q2

REPORT INFORMATION
  Report Type: Spontaneous
  Country: US (occurrence: None)
  Receive Date: 20130401
  Receipt Date: 20130401
  Transmission Date: 20140414
  Serious: Yes (Hospitalization)
  Sender: FDA-Public Use
  Company Number: None

PATIENT
  Age: 98 Year
  Sex: Female
  Weight: 66 kg

DRUGS (15)
  1. WARFARIN [Suspect]
     Indication: ATRIAL FIBRILLATION
     Dosage: 5 MG DAILY PO?PRIOR TO ADMISSION
     Route: 048
  2. BISACODYL [Concomitant]
  3. ACETAMINOPHEN [Concomitant]
  4. LEVOFLOXACIN [Concomitant]
  5. POLYETHYLENE GLYCOL [Concomitant]
  6. SENNA [Concomitant]
  7. HYDROCODONE/ACETAMINOPHEN [Concomitant]
  8. DOCUSATE/SENNA [Concomitant]
  9. NYSTATIN POWDER [Concomitant]
  10. NIFEDIPINE XL [Concomitant]
  11. LORATADINE [Concomitant]
  12. ASPIRIN [Concomitant]
  13. CHOLECALCIFEROL [Concomitant]
  14. LEVOTHYROXINE [Concomitant]
  15. HCTZ [Concomitant]

REACTIONS (5)
  - Rectal haemorrhage [None]
  - Haematuria [None]
  - International normalised ratio increased [None]
  - Drug interaction [None]
  - Urinary tract infection [None]
